FAERS Safety Report 6641025-5 (Version None)
Quarter: 2010Q1

REPORT INFORMATION
  Report Type: 
  Country: None (occurrence: None)
  Receive Date: 20100318
  Receipt Date: 20100309
  Transmission Date: 20100710
  Serious: Yes (Other)
  Sender: FDA-Public Use
  Company Number: B0640667A

PATIENT
  Sex: Female

DRUGS (1)
  1. LAMICTAL CD [Suspect]
     Indication: EPILEPSY
     Dosage: 50MG FIVE TIMES PER DAY
     Route: 065

REACTIONS (5)
  - BLINDNESS [None]
  - DRY SKIN [None]
  - DYSKINESIA [None]
  - OEDEMA PERIPHERAL [None]
  - TIC [None]
